FAERS Safety Report 7298224-1 (Version None)
Quarter: 2011Q1

REPORT INFORMATION
  Report Type: 
  Country: None (occurrence: None)
  Receive Date: 20110217
  Receipt Date: 20100915
  Transmission Date: 20110831
  Serious: Yes (Hospitalization, Other)
  Sender: FDA-Public Use
  Company Number: US-BAYER-201020528NA

PATIENT
  Sex: Male

DRUGS (5)
  1. NEXAVAR [Suspect]
     Indication: HEPATIC NEOPLASM MALIGNANT
     Route: 048
     Dates: start: 20090223
  2. DIURETICS [Concomitant]
     Dates: end: 20100401
  3. DIURETICS [Concomitant]
     Dosage: DOSE INCREASED
     Dates: start: 20100401
  4. NEXAVAR [Suspect]
     Route: 048
  5. NEXAVAR [Suspect]
     Route: 048

REACTIONS (10)
  - NEUROPATHY PERIPHERAL [None]
  - HEPATIC NEOPLASM MALIGNANT [None]
  - DECREASED APPETITE [None]
  - WEIGHT DECREASED [None]
  - DYSGEUSIA [None]
  - PYREXIA [None]
  - HYPOAESTHESIA [None]
  - ABDOMINAL CAVITY DRAINAGE [None]
  - HYPERKERATOSIS [None]
  - PRURITUS [None]
